FAERS Safety Report 8831230 (Version 2)
Quarter: 2012Q4

REPORT INFORMATION
  Report Type: 
  Country: US (occurrence: US)
  Receive Date: 20121008
  Receipt Date: 20121017
  Transmission Date: 20130627
  Serious: No
  Sender: FDA-Public Use
  Company Number: US-VERTEX PHARMACEUTICAL INC.-2012-021522

PATIENT
  Age: 43 None
  Sex: Female
  Weight: 79 kg

DRUGS (11)
  1. VX-950 [Suspect]
     Indication: HEPATITIS C
     Dosage: 750 mg, tid
     Route: 048
     Dates: start: 20120909
  2. PEGASYS [Suspect]
     Indication: HEPATITIS C
     Dosage: 180 ?g, UNK
     Route: 058
     Dates: start: 20120909
  3. RIBAVIRIN [Suspect]
     Indication: HEPATITIS C
     Dosage: 3 DF, bid
     Route: 048
     Dates: start: 20120909
  4. METFORMIN [Concomitant]
     Indication: DIABETES MELLITUS
  5. GLIPIZIDE [Concomitant]
     Indication: DIABETES MELLITUS
  6. LISINOPRIL [Concomitant]
     Indication: HYPERTENSION
  7. WELLBUTRIN [Concomitant]
     Indication: DEPRESSION
  8. UNISOM                             /00000402/ [Concomitant]
  9. NORCO [Concomitant]
     Indication: JOINT DISLOCATION
  10. IBUPROFEN [Concomitant]
  11. FLEXERIL                           /00428402/ [Concomitant]

REACTIONS (7)
  - Dyspepsia [Not Recovered/Not Resolved]
  - Chills [Recovered/Resolved]
  - Alopecia [Not Recovered/Not Resolved]
  - Rash pruritic [Not Recovered/Not Resolved]
  - Pruritus generalised [Not Recovered/Not Resolved]
  - Diarrhoea [Not Recovered/Not Resolved]
  - Nausea [Not Recovered/Not Resolved]
